FAERS Safety Report 10043198 (Version 1)
Quarter: 2014Q1

REPORT INFORMATION
  Report Type: Spontaneous
  Country: US (occurrence: None)
  Receive Date: 20140327
  Receipt Date: 20140327
  Transmission Date: 20141002
  Serious: Yes (Other)
  Sender: FDA-Public Use
  Company Number: None

PATIENT
  Age: 77 Year
  Sex: Male
  Weight: 86.18 kg

DRUGS (2)
  1. ACYCLOVIR [Suspect]
     Indication: HERPES SIMPLEX
     Route: 048
  2. ACYCLOVIR [Suspect]
     Indication: ULCERATIVE KERATITIS
     Route: 048

REACTIONS (2)
  - Confusional state [None]
  - Memory impairment [None]
